FAERS Safety Report 9413330 (Version 1)
Quarter: 2013Q3

REPORT INFORMATION
  Report Type: Spontaneous
  Country: US (occurrence: None)
  Receive Date: 20130718
  Receipt Date: 20130718
  Transmission Date: 20140515
  Serious: Yes (Death, Hospitalization)
  Sender: FDA-Public Use
  Company Number: IPC201307-000282

PATIENT
  Age: 38 Year
  Sex: Female

DRUGS (1)
  1. CHLOROQUINE PHOSPHATE [Suspect]
     Indication: SYSTEMIC LUPUS ERYTHEMATOSUS
     Dosage: 500 MG/D

REACTIONS (9)
  - Congestive cardiomyopathy [None]
  - Cardiac failure congestive [None]
  - Cardio-respiratory arrest [None]
  - Dizziness [None]
  - Muscular weakness [None]
  - Muscle atrophy [None]
  - Hypoxia [None]
  - Atrioventricular block complete [None]
  - Ventricular hypertrophy [None]
